FAERS Safety Report 18566879 (Version 2)
Quarter: 2020Q4

REPORT INFORMATION
  Report Type: Spontaneous
  Country: DK (occurrence: DK)
  Receive Date: 20201201
  Receipt Date: 20201215
  Transmission Date: 20210114
  Serious: Yes (Hospitalization, Other)
  Sender: FDA-Public Use
  Company Number: DK-ASTRAZENECA-2020SF54018

PATIENT
  Age: 837 Month
  Sex: Male

DRUGS (12)
  1. IRESSA [Suspect]
     Active Substance: GEFITINIB
     Route: 048
     Dates: start: 201506, end: 201808
  2. TAGRISSO [Suspect]
     Active Substance: OSIMERTINIB
     Route: 048
     Dates: start: 201808
  3. CARBOPLATIN. [Concomitant]
     Active Substance: CARBOPLATIN
     Dates: start: 201505
  4. LOSARTAN. [Concomitant]
     Active Substance: LOSARTAN
  5. FRAGMIN [Concomitant]
     Active Substance: DALTEPARIN SODIUM
  6. GLUCOSAMINE [Concomitant]
     Active Substance: GLUCOSAMINE
     Dosage: (EVERY 3 MONTHS),
  7. VINORELBINE [Concomitant]
     Active Substance: VINORELBINE TARTRATE
     Dates: start: 201505
  8. ZOLEDRONIC ACID [Concomitant]
     Active Substance: ZOLEDRONIC ACID
     Dosage: (EVERY 3 MONTHS),
  9. PANTOPRAZOLE [Concomitant]
     Active Substance: PANTOPRAZOLE
     Dosage: (EVERY 3 MONTHS),
  10. CALCIUM [Concomitant]
     Active Substance: CALCIUM
     Dosage: (EVERY 3 MONTHS),
  11. TAGRISSO [Suspect]
     Active Substance: OSIMERTINIB
     Route: 048
  12. VITAMIN D [Concomitant]
     Active Substance: VITAMIN D NOS
     Dosage: (EVERY 3 MONTHS),

REACTIONS (9)
  - Pulmonary embolism [Unknown]
  - Metastases to bone [Unknown]
  - Metastases to prostate [Unknown]
  - Lung infiltration [Unknown]
  - Pulmonary mass [Unknown]
  - Malignant neoplasm progression [Unknown]
  - Organising pneumonia [Unknown]
  - Osteonecrosis [Unknown]
  - Metastases to lymph nodes [Unknown]

NARRATIVE: CASE EVENT DATE: 201808
